FAERS Safety Report 7238053-8 (Version None)
Quarter: 2011Q1

REPORT INFORMATION
  Report Type: 
  Country: None (occurrence: None)
  Receive Date: 20110121
  Receipt Date: 20110114
  Transmission Date: 20110831
  Serious: Yes (Life-Threatening, Hospitalization)
  Sender: FDA-Public Use
  Company Number: B0635997A

PATIENT
  Sex: Female
  Weight: 80 kg

DRUGS (4)
  1. ZANAMIVIR [Suspect]
     Dosage: 25MG FOUR TIMES PER DAY
     Route: 055
     Dates: start: 20100114, end: 20100118
  2. REBETOL [Suspect]
     Indication: H1N1 INFLUENZA
     Dosage: 200MG TWICE PER DAY
     Route: 048
     Dates: start: 20091230, end: 20100111
  3. OXYGEN [Concomitant]
  4. ZANAMIVIR [Suspect]
     Dosage: 600MG TWICE PER DAY
     Route: 042
     Dates: start: 20100114, end: 20100123

REACTIONS (2)
  - PANCYTOPENIA [None]
  - APLASIA [None]
